FAERS Safety Report 16865167 (Version 3)
Quarter: 2019Q4

REPORT INFORMATION
  Report Type: Report from Study
  Country: DE (occurrence: DE)
  Receive Date: 20190930
  Receipt Date: 20191120
  Transmission Date: 20200122
  Serious: Yes (Hospitalization)
  Sender: FDA-Public Use
  Company Number: DE-ROCHE-2421262

PATIENT
  Age: 71 Year
  Sex: Male
  Weight: 76 kg

DRUGS (6)
  1. SIMVASTATIN. [Concomitant]
     Active Substance: SIMVASTATIN
     Indication: MYOCARDIAL INFARCTION
     Dosage: ON 20/SEP/2019, RECEIVED LAST DOSE PRIOR TO SERIOUS ADVERSE EVENT
     Route: 048
     Dates: start: 201901
  2. CLOPIDOGREL [Concomitant]
     Active Substance: CLOPIDOGREL BISULFATE
     Indication: MYOCARDIAL INFARCTION
     Dosage: ON 20/SEP/2019, RECEIVED LAST DOSE PRIOR TO SERIOUS ADVERSE EVENT
     Route: 048
     Dates: start: 201901
  3. OBINUTUZUMAB. [Suspect]
     Active Substance: OBINUTUZUMAB
     Indication: B-CELL LYMPHOMA
     Dosage: ON 28/AUG/2019, HE RECEIVED LAST DOSE OF OBINUTUZUMAB PRIOR TO ONSET OF SERIOUS ADVERSE EVENT
     Route: 042
     Dates: start: 20190515
  4. RAMIPRIL. [Concomitant]
     Active Substance: RAMIPRIL
     Indication: MYOCARDIAL INFARCTION
     Dosage: ON 20/SEP/2019, RECEIVED LAST DOSE PRIOR TO SERIOUS ADVERSE EVENT
     Route: 048
     Dates: start: 201901
  5. ASPIRIN. [Concomitant]
     Active Substance: ASPIRIN
     Indication: MYOCARDIAL INFARCTION
     Dosage: ON 20/SEP/2019, RECEIVED LAST DOSE PRIOR TO SERIOUS ADVERSE EVENT
     Route: 048
     Dates: start: 201901
  6. BISOPROLOL [Concomitant]
     Active Substance: BISOPROLOL
     Indication: MYOCARDIAL INFARCTION
     Dosage: ON 20/SEP/2019, RECEIVED LAST DOSE PRIOR TO SERIOUS ADVERSE EVENT
     Route: 048
     Dates: start: 201901

REACTIONS (1)
  - Pulmonary embolism [Recovered/Resolved]

NARRATIVE: CASE EVENT DATE: 20190920
